FAERS Safety Report 19222710 (Version 2)
Quarter: 2021Q2

REPORT INFORMATION
  Report Type: Other
  Country: CA (occurrence: CA)
  Receive Date: 20210506
  Receipt Date: 20210603
  Transmission Date: 20210717
  Serious: Yes (Other)
  Sender: FDA-Public Use
  Company Number: CA-INTERCEPT-PM2021001417

PATIENT
  Age: 77 Year
  Sex: Male

DRUGS (6)
  1. RAN?PRAVASTATIN [Concomitant]
     Indication: DRY MOUTH
     Dosage: 10 MG, QHS
  2. OCALIVA [Suspect]
     Active Substance: OBETICHOLIC ACID
     Indication: PRIMARY BILIARY CHOLANGITIS
     Dosage: 5 MILLIGRAM, QD
     Route: 048
     Dates: start: 20191224, end: 202007
  3. PANTOLOC [Concomitant]
     Active Substance: PANTOPRAZOLE SODIUM
     Indication: PRODUCT USED FOR UNKNOWN INDICATION
  4. URSODIOL. [Concomitant]
     Active Substance: URSODIOL
     Dosage: 1000 MG, QD
     Dates: start: 20160101
  5. URSODIOL. [Concomitant]
     Active Substance: URSODIOL
     Dosage: UNK, DOUBLED DOSE
  6. OCALIVA [Suspect]
     Active Substance: OBETICHOLIC ACID
     Dosage: 5 MILLIGRAM, QD
     Route: 048
     Dates: start: 20210202, end: 202104

REACTIONS (6)
  - Abdominal cavity drainage [Not Recovered/Not Resolved]
  - Unevaluable event [Unknown]
  - Abdominal distension [Not Recovered/Not Resolved]
  - Haematochezia [Not Recovered/Not Resolved]
  - Weight increased [Not Recovered/Not Resolved]
  - Therapy interrupted [Not Recovered/Not Resolved]

NARRATIVE: CASE EVENT DATE: 202105
